FAERS Safety Report 18524468 (Version 1)
Quarter: 2020Q4

REPORT INFORMATION
  Report Type: Report from Study
  Country: BR (occurrence: BR)
  Receive Date: 20201119
  Receipt Date: 20201119
  Transmission Date: 20210114
  Serious: Yes (Other)
  Sender: FDA-Public Use
  Company Number: BR-TAKEDA-BR202019699

PATIENT

DRUGS (1)
  1. IDURSULFASE [Suspect]
     Active Substance: IDURSULFASE
     Indication: MUCOPOLYSACCHARIDOSIS II
     Dosage: 2 DOSAGE FORM
     Route: 065

REACTIONS (13)
  - Condition aggravated [Unknown]
  - Weight increased [Unknown]
  - Pyrexia [Unknown]
  - COVID-19 [Unknown]
  - Eating disorder [Unknown]
  - Weight decreased [Unknown]
  - Macroglossia [Unknown]
  - Dyspnoea [Unknown]
  - Erythema [Unknown]
  - Product dose omission issue [Unknown]
  - Poor venous access [Unknown]
  - Oedema peripheral [Unknown]
  - Body height increased [Unknown]
